FAERS Safety Report 11288025 (Version 1)
Quarter: 2015Q3

REPORT INFORMATION
  Report Type: Spontaneous
  Country: US (occurrence: None)
  Receive Date: 20150720
  Receipt Date: 20150720
  Transmission Date: 20151125
  Serious: No
  Sender: FDA-Public Use
  Company Number: None

PATIENT
  Age: 26 Year
  Sex: Female
  Weight: 55.34 kg

DRUGS (1)
  1. NUVARING [Suspect]
     Active Substance: ETHINYL ESTRADIOL\ETONOGESTREL
     Dates: start: 20150701, end: 20150710

REACTIONS (6)
  - Vulvovaginal discomfort [None]
  - Dizziness [None]
  - Breast discharge [None]
  - Breast pain [None]
  - Vulvovaginal burning sensation [None]
  - Migraine [None]

NARRATIVE: CASE EVENT DATE: 20150701
